FAERS Safety Report 21251268 (Version 6)
Quarter: 2023Q1

REPORT INFORMATION
  Report Type: Report from Study
  Country: JP (occurrence: JP)
  Receive Date: 20220825
  Receipt Date: 20230214
  Transmission Date: 20230417
  Serious: Yes (Hospitalization, Other)
  Sender: FDA-Public Use
  Company Number: JP-CHUGAI-2022005237

PATIENT
  Age: 50 Year
  Sex: Female
  Weight: 55 kg

DRUGS (6)
  1. BEVACIZUMAB [Suspect]
     Active Substance: BEVACIZUMAB
     Indication: Breast cancer stage IV
     Dosage: MOST RECENT DOSE 20/JUN/2022
     Route: 041
     Dates: start: 20211015
  2. PACLITAXEL [Suspect]
     Active Substance: PACLITAXEL
     Indication: Breast cancer stage IV
     Dosage: MOST RECENT DOSE 20/JUN/2022
     Route: 041
     Dates: start: 20211015
  3. ATEZOLIZUMAB [Suspect]
     Active Substance: ATEZOLIZUMAB
     Indication: Breast cancer stage IV
     Dosage: 840 MILLIGRAM, MOST RECENT DOSE 20/JUN/2022
     Route: 041
     Dates: start: 20211015
  4. FEMARA [Suspect]
     Active Substance: LETROZOLE
     Indication: Breast cancer stage IV
     Dosage: 2.5 MILLIGRAM, QD
     Route: 048
     Dates: start: 20220712, end: 20220815
  5. VERZENIO [Suspect]
     Active Substance: ABEMACICLIB
     Indication: Breast cancer stage IV
     Dosage: UNK
     Route: 048
     Dates: start: 20220712, end: 20220808
  6. FLUNITRAZEPAM [Concomitant]
     Active Substance: FLUNITRAZEPAM
     Indication: Insomnia
     Dosage: 1 MILLIGRAM, PRN
     Route: 048
     Dates: start: 20210917

REACTIONS (3)
  - Hepatic function abnormal [Recovered/Resolved]
  - Metastases to liver [Unknown]
  - Metastases to lymph nodes [Unknown]

NARRATIVE: CASE EVENT DATE: 20220815
